FAERS Safety Report 6175210-6 (Version None)
Quarter: 2009Q2

REPORT INFORMATION
  Report Type: 
  Country: None (occurrence: None)
  Receive Date: 20090430
  Receipt Date: 20090126
  Transmission Date: 20091009
  Serious: No
  Sender: FDA-Public Use
  Company Number: US-ASTRAZENECA-2009UW02325

PATIENT
  Age: 78 Year
  Sex: Female
  Weight: 61.2 kg

DRUGS (6)
  1. NEXIUM [Suspect]
     Indication: GASTROOESOPHAGEAL REFLUX DISEASE
     Route: 048
     Dates: start: 20070228, end: 20080701
  2. DIOVAN [Concomitant]
     Indication: HYPERTENSION
  3. SYNTHROID [Concomitant]
     Indication: HYPOTHYROIDISM
  4. FORTEO [Concomitant]
     Indication: OSTEOPOROSIS
  5. ASPIRIN [Concomitant]
  6. SKELAXIN [Concomitant]

REACTIONS (2)
  - BONE DENSITY DECREASED [None]
  - OSTEOPOROSIS [None]
